FAERS Safety Report 6542118-3 (Version None)
Quarter: 2010Q1

REPORT INFORMATION
  Report Type: 
  Country: None (occurrence: None)
  Receive Date: 20100119
  Receipt Date: 20100112
  Transmission Date: 20100710
  Serious: Yes (Hospitalization)
  Sender: FDA-Public Use
  Company Number: RU-ASTRAZENECA-2009SE28520

PATIENT
  Age: 11553 Day
  Sex: Male
  Weight: 80 kg

DRUGS (4)
  1. SYMBICORT [Suspect]
     Indication: ASTHMA
     Dosage: 160/4.5 2 INHALATIONS BID
     Route: 055
     Dates: start: 20090729, end: 20090805
  2. PULMICORT RESPULES [Suspect]
     Dosage: ONE INHALATION
     Route: 055
     Dates: start: 20090801
  3. ALBUTEROL [Concomitant]
     Indication: ASTHMA
     Dosage: AS REQUIRED
     Route: 055
  4. CLENIL [Concomitant]
     Indication: ASTHMA
     Route: 055

REACTIONS (3)
  - ORAL DISORDER [None]
  - PYREXIA [None]
  - RASH [None]
